FAERS Safety Report 13599221 (Version 2)
Quarter: 2018Q1

REPORT INFORMATION
  Report Type: Spontaneous
  Country: IE (occurrence: IE)
  Receive Date: 20170531
  Receipt Date: 20180321
  Transmission Date: 20180508
  Serious: Yes (Hospitalization, Congenital Anomaly, Other)
  Sender: FDA-Public Use
  Company Number: IE-ABBVIE-17P-229-1993019-00

PATIENT
  Sex: Male

DRUGS (1)
  1. EPILIM [Suspect]
     Active Substance: VALPROATE SODIUM
     Indication: MATERNAL EXPOSURE TIMING UNSPECIFIED
     Route: 064

REACTIONS (23)
  - Developmental delay [Unknown]
  - Foot deformity [Unknown]
  - Anomaly of external ear congenital [Unknown]
  - Craniofacial deformity [Unknown]
  - Lip disorder [Unknown]
  - Adverse event [Unknown]
  - Foetal exposure during pregnancy [Unknown]
  - Tendonitis [Unknown]
  - Congenital nose malformation [Unknown]
  - Deformity of orbit [Unknown]
  - Madarosis [Unknown]
  - Delayed fontanelle closure [Unknown]
  - Dysmorphism [Unknown]
  - Tooth malformation [Unknown]
  - Hypoglycaemia neonatal [Unknown]
  - Dyspraxia [Unknown]
  - Toe walking [Unknown]
  - Language disorder [Unknown]
  - Ankle deformity [Unknown]
  - Muscular weakness [Unknown]
  - Macrocephaly [Unknown]
  - Tooth disorder [Unknown]
  - Congenital eyelid malformation [Unknown]
